FAERS Safety Report 25834749 (Version 1)
Quarter: 2025Q3

REPORT INFORMATION
  Report Type: Spontaneous
  Country: EU (occurrence: EU)
  Receive Date: 20250923
  Receipt Date: 20250923
  Transmission Date: 20251021
  Serious: Yes (Hospitalization)
  Sender: CHEPLAPHARM
  Company Number: None

PATIENT
  Age: 88 Year
  Sex: Female
  Weight: 56 kg

DRUGS (9)
  1. QUETIAPINE [Suspect]
     Active Substance: QUETIAPINE
     Indication: Product used for unknown indication
     Dosage: 3 TABLETS IN THE EVENING?DAILY DOSE: 600 MILLIGRAM
     Route: 048
     Dates: start: 20250323, end: 20250326
  2. QUETIAPINE [Suspect]
     Active Substance: QUETIAPINE
     Indication: Product used for unknown indication
     Route: 048
     Dates: start: 20250327
  3. QUETIAPINE [Suspect]
     Active Substance: QUETIAPINE
     Indication: Product used for unknown indication
     Dosage: DAILY DOSE: 150 MILLIGRAM
     Route: 048
  4. CLOMIPRAMINE HYDROCHLORIDE [Suspect]
     Active Substance: CLOMIPRAMINE HYDROCHLORIDE
     Indication: Product used for unknown indication
     Dosage: 1 TABLET IN THE MORNING?DAILY DOSE: 100 MILLIGRAM
     Route: 048
     Dates: start: 20250323, end: 20250326
  5. CLOMIPRAMINE HYDROCHLORIDE [Suspect]
     Active Substance: CLOMIPRAMINE HYDROCHLORIDE
     Indication: Product used for unknown indication
     Dosage: 1 TABLET IN THE MORNING?DAILY DOSE: 75 MILLIGRAM
     Route: 048
  6. FUROSEMIDE [Suspect]
     Active Substance: FUROSEMIDE
     Dates: start: 20250327
  7. FUROSEMIDE [Suspect]
     Active Substance: FUROSEMIDE
     Dates: end: 20250325
  8. KARDEGIC [Concomitant]
     Active Substance: ASPIRIN DL-LYSINE
  9. CHOLECALCIFEROL [Concomitant]
     Active Substance: CHOLECALCIFEROL
     Dosage: ONE AMPOULE PER MONTH

REACTIONS (10)
  - Acute pulmonary oedema [Recovered/Resolved]
  - Disturbance in attention [Recovered/Resolved]
  - Hypotension [Recovered/Resolved]
  - Blood pressure increased [Unknown]
  - Vomiting [Unknown]
  - Joint injury [Unknown]
  - Fall [Unknown]
  - Somnolence [Recovered/Resolved]
  - Abdominal distension [Unknown]
  - Incorrect dose administered [Recovered/Resolved]

NARRATIVE: CASE EVENT DATE: 20250323
